FAERS Safety Report 13194496 (Version 1)
Quarter: 2017Q1

REPORT INFORMATION
  Report Type: Spontaneous
  Country: US (occurrence: US)
  Receive Date: 20170207
  Receipt Date: 20170207
  Transmission Date: 20170428
  Serious: No
  Sender: FDA-Public Use
  Company Number: US-JAZZ-2016-US-000951

PATIENT
  Age: 52 Year
  Sex: Male

DRUGS (6)
  1. DILAUDID [Suspect]
     Active Substance: HYDROMORPHONE HYDROCHLORIDE
     Indication: BACK PAIN
     Dosage: 0.10 MG, QH
     Route: 037
  2. PRIALT [Suspect]
     Active Substance: ZICONOTIDE ACETATE
     Indication: PAIN
     Dosage: 0.115 ?G, QH
     Route: 037
     Dates: start: 20151112, end: 20151123
  3. DILAUDID [Suspect]
     Active Substance: HYDROMORPHONE HYDROCHLORIDE
     Indication: PAIN
     Dosage: 0.042 MG, QH
     Route: 037
  4. PRIALT [Suspect]
     Active Substance: ZICONOTIDE ACETATE
     Dosage: 0.13 ?G, QH
     Route: 037
     Dates: start: 20151123, end: 20151210
  5. PRIALT [Suspect]
     Active Substance: ZICONOTIDE ACETATE
     Indication: BACK PAIN
     Dosage: 0.105 ?G, QH
     Route: 037
     Dates: start: 20150923, end: 20151112
  6. PRIALT [Suspect]
     Active Substance: ZICONOTIDE ACETATE
     Dosage: 0.17 ?G, QH
     Route: 037
     Dates: start: 20151210

REACTIONS (13)
  - Increased appetite [Recovered/Resolved]
  - Diarrhoea [Unknown]
  - Device issue [Recovered/Resolved]
  - Swelling [Recovered/Resolved]
  - Gait disturbance [Unknown]
  - Insomnia [Recovered/Resolved]
  - Hallucination [Unknown]
  - Confusional state [Unknown]
  - Fluid retention [Recovered/Resolved]
  - Back pain [Recovered/Resolved]
  - Rash [Recovered/Resolved]
  - Irritability [Recovered/Resolved]
  - Pain [Recovered/Resolved]

NARRATIVE: CASE EVENT DATE: 20160117
